FAERS Safety Report 25962800 (Version 1)
Quarter: 2025Q4

REPORT INFORMATION
  Report Type: Spontaneous
  Country: US (occurrence: None)
  Receive Date: 20251026
  Receipt Date: 20251026
  Transmission Date: 20260117
  Serious: Yes (unspecified)
  Sender: FDA-CTU
  Company Number: None

PATIENT
  Age: 53 Year
  Sex: Female

DRUGS (1)
  1. AROMASIN [Suspect]
     Active Substance: EXEMESTANE
     Dosage: OTHER QUANTITY : 1 TABLET(S);?FREQUENCY : DAILY;?
     Route: 048

REACTIONS (8)
  - Dyspnoea [None]
  - Wheezing [None]
  - Cough [None]
  - Productive cough [None]
  - Thrombosis [None]
  - Rectal haemorrhage [None]
  - Proctalgia [None]
  - Anorectal discomfort [None]

NARRATIVE: CASE EVENT DATE: 20241024
